FAERS Safety Report 25060603 (Version 1)
Quarter: 2025Q1

REPORT INFORMATION
  Report Type: Report from Study
  Country: CA (occurrence: CA)
  Receive Date: 20250310
  Receipt Date: 20250310
  Transmission Date: 20250409
  Serious: Yes (Other)
  Sender: TAKEDA
  Company Number: CA-TAKEDA-2025TUS022980

PATIENT
  Sex: Female

DRUGS (9)
  1. VEDOLIZUMAB [Suspect]
     Active Substance: VEDOLIZUMAB
     Indication: Crohn^s disease
  2. ALLOPURINOL [Concomitant]
     Active Substance: ALLOPURINOL
  3. TRAMADOL [Concomitant]
     Active Substance: TRAMADOL
     Indication: Hip fracture
  4. ASPIRIN [Concomitant]
     Active Substance: ASPIRIN
  5. OMEGA 3 [Concomitant]
     Active Substance: CAPSAICIN
  6. MAGNESIUM [Concomitant]
     Active Substance: MAGNESIUM
  7. VITAMIN C [Concomitant]
     Active Substance: ASCORBIC ACID
  8. VITAMIN D3 [Concomitant]
     Active Substance: CHOLECALCIFEROL
  9. TYLENOL WITH CODEINE [Concomitant]
     Active Substance: ACETAMINOPHEN\CODEINE PHOSPHATE
     Indication: Hip fracture

REACTIONS (2)
  - Pneumonia [Recovering/Resolving]
  - Influenza [Unknown]
